FAERS Safety Report 16066487 (Version 1)
Quarter: 2019Q1

REPORT INFORMATION
  Report Type: Report from Study
  Country: US (occurrence: US)
  Receive Date: 20190313
  Receipt Date: 20190313
  Transmission Date: 20190418
  Serious: Yes (Other)
  Sender: FDA-Public Use
  Company Number: US-PFIZER INC-2018512468

PATIENT
  Age: 80 Year
  Sex: Female

DRUGS (1)
  1. IBRANCE [Suspect]
     Active Substance: PALBOCICLIB
     Indication: BREAST CANCER FEMALE
     Dosage: 125 MG, CYCLIC (DAILY FOR 21 DAYS OF 28 DAY CYCLE/DAILY 21 DAYS ON AND 7 DAYS OFF)
     Route: 048
     Dates: start: 20181019

REACTIONS (5)
  - Bone marrow failure [Unknown]
  - Dry skin [Unknown]
  - Somnolence [Unknown]
  - Xerosis [Recovering/Resolving]
  - Blister [Unknown]

NARRATIVE: CASE EVENT DATE: 2018
